FAERS Safety Report 9463935 (Version 2)
Quarter: 2013Q3

REPORT INFORMATION
  Report Type: Spontaneous
  Country: CN (occurrence: CN)
  Receive Date: 20130819
  Receipt Date: 20130918
  Transmission Date: 20140515
  Serious: Yes (Hospitalization)
  Sender: FDA-Public Use
  Company Number: CN-NOVOPROD-385116

PATIENT
  Age: 71 Year
  Sex: Female
  Weight: 52 kg

DRUGS (2)
  1. NOVORAPID PENFILL [Suspect]
     Indication: TYPE 2 DIABETES MELLITUS
     Dosage: 10 U, QD BEFORE BREAKFAST
     Route: 065
  2. LANTUS [Concomitant]
     Indication: TYPE 2 DIABETES MELLITUS
     Dosage: 14 U BEFORE SLEEP

REACTIONS (3)
  - Cardiac discomfort [Unknown]
  - Device failure [Unknown]
  - Blood glucose increased [Unknown]
